FAERS Safety Report 9000782 (Version 1)
Quarter: 2013Q1

REPORT INFORMATION
  Report Type: Spontaneous
  Country: AE (occurrence: None)
  Receive Date: 20130103
  Receipt Date: 20130103
  Transmission Date: 20140127
  Serious: Yes (Life-Threatening, Hospitalization)
  Sender: FDA-Public Use
  Company Number: None

PATIENT
  Age: 24 Year
  Sex: Female
  Weight: 51.26 kg

DRUGS (1)
  1. KETOROLAC [Suspect]
     Indication: PROCEDURAL PAIN
     Dosage: 30MG AMPULES SINGLE USE IV
     Route: 042
     Dates: start: 20121216, end: 20121216

REACTIONS (4)
  - Dyspnoea [None]
  - Oxygen saturation decreased [None]
  - Drug hypersensitivity [None]
  - Anaphylactic reaction [None]
